FAERS Safety Report 6882465-9 (Version None)
Quarter: 2010Q3

REPORT INFORMATION
  Report Type: 
  Country: None (occurrence: None)
  Receive Date: 20100729
  Receipt Date: 20090805
  Transmission Date: 20110219
  Serious: No
  Sender: FDA-Public Use
  Company Number: US-MYLANLABS-2009S1014160

PATIENT
  Age: 64 Year
  Sex: Female

DRUGS (4)
  1. CHLORPROPAMIDE [Suspect]
     Indication: DIABETES MELLITUS
     Dates: start: 20080101
  2. COZAAR [Concomitant]
  3. COLCHICINE [Concomitant]
  4. MECLIZINE [Concomitant]

REACTIONS (3)
  - CARPAL TUNNEL SYNDROME [None]
  - DYSPEPSIA [None]
  - ERYTHEMA [None]
